FAERS Safety Report 16601000 (Version 8)
Quarter: 2019Q3

REPORT INFORMATION
  Report Type: Report from Study
  Country: KR (occurrence: KR)
  Receive Date: 20190719
  Receipt Date: 20190826
  Transmission Date: 20191004
  Serious: Yes (Death)
  Sender: FDA-Public Use
  Company Number: KR-EISAI MEDICAL RESEARCH-EC-2019-059365

PATIENT
  Age: 57 Year
  Sex: Male
  Weight: 52.3 kg

DRUGS (16)
  1. LENVATINIB [Suspect]
     Active Substance: LENVATINIB
     Indication: GASTRIC CANCER
     Route: 048
     Dates: start: 20190416, end: 20190425
  2. PEMBROLIZUMAB. [Suspect]
     Active Substance: PEMBROLIZUMAB
     Route: 041
     Dates: start: 20190708, end: 20190708
  3. FEROBA U [Concomitant]
     Active Substance: FERROUS SULFATE
     Dates: start: 20190326
  4. BEECOM HEXA [Concomitant]
     Dates: start: 20190429
  5. ALDACTONE [Concomitant]
     Active Substance: SPIRONOLACTONE
     Dates: start: 20190325
  6. MACPERAN [Concomitant]
     Active Substance: METOCLOPRAMIDE HYDROCHLORIDE
     Dates: start: 20190510
  7. LENVATINIB [Suspect]
     Active Substance: LENVATINIB
     Route: 048
     Dates: start: 20190509, end: 20190519
  8. SODIUM BICARBONATE. [Concomitant]
     Active Substance: SODIUM BICARBONATE
     Dates: start: 20190326
  9. SYNTHROID [Concomitant]
     Active Substance: LEVOTHYROXINE SODIUM
     Dates: start: 20190709
  10. LASIX [Concomitant]
     Active Substance: FUROSEMIDE
     Dates: start: 20190325
  11. TANTUM [Concomitant]
     Active Substance: BENZYDAMINE HYDROCHLORIDE
     Dates: start: 20190326
  12. OMAPONE PERI [Concomitant]
     Dates: start: 20190414
  13. LENVATINIB [Suspect]
     Active Substance: LENVATINIB
     Route: 048
     Dates: start: 20190529, end: 20190616
  14. LENVATINIB [Suspect]
     Active Substance: LENVATINIB
     Route: 048
     Dates: start: 20190625, end: 20190713
  15. PEMBROLIZUMAB. [Suspect]
     Active Substance: PEMBROLIZUMAB
     Indication: GASTRIC CANCER
     Route: 041
     Dates: start: 20190416, end: 20190617
  16. SYNTHROID [Concomitant]
     Active Substance: LEVOTHYROXINE SODIUM
     Dates: start: 20190503, end: 20190708

REACTIONS (1)
  - Haemorrhage [Fatal]

NARRATIVE: CASE EVENT DATE: 20190716
